FAERS Safety Report 26069422 (Version 1)
Quarter: 2025Q4

REPORT INFORMATION
  Report Type: Spontaneous
  Country: GB (occurrence: GB)
  Receive Date: 20251120
  Receipt Date: 20251120
  Transmission Date: 20260118
  Serious: Yes (Hospitalization)
  Sender: BAUSCH AND LOMB
  Company Number: GB-MLMSERVICE-20251107-PI704629-00293-1

PATIENT
  Age: 56 Year
  Sex: Female

DRUGS (7)
  1. ALBUTEROL [Suspect]
     Active Substance: ALBUTEROL
     Indication: Asthma
     Dosage: INHALED/NEBULISED SALBUTAMOL AT HOME
     Route: 055
  2. ALBUTEROL [Suspect]
     Active Substance: ALBUTEROL
     Dosage: MULTIPLE CONSECUTIVE NEBULISATIONS TOTALING APPROXIMATELY 7.5-10 MG OVER A SHORT PERIOD
     Route: 055
  3. RIVAROXABAN [Concomitant]
     Active Substance: RIVAROXABAN
     Indication: Pulmonary embolism
  4. MAGNESIUM SULFATE [Concomitant]
     Active Substance: MAGNESIUM SULFATE
     Indication: Product used for unknown indication
     Route: 042
  5. PREDNISOLONE [Concomitant]
     Active Substance: PREDNISOLONE
     Indication: Product used for unknown indication
     Route: 048
  6. LEVOFLOXACIN [Concomitant]
     Active Substance: LEVOFLOXACIN
     Indication: Product used for unknown indication
  7. IPRATROPIUM [Concomitant]
     Active Substance: IPRATROPIUM
     Indication: Asthma
     Dosage: NEBULIZATION (EVERY 20-30 MINUTES OVER THE FIRST TWO TO THREE HOURS)
     Route: 055

REACTIONS (1)
  - Lactic acidosis [Recovered/Resolved]
